FAERS Safety Report 4566473-9 (Version None)
Quarter: 2005Q1

REPORT INFORMATION
  Report Type: 
  Country: None (occurrence: None)
  Receive Date: 20050127
  Receipt Date: 20050127
  Transmission Date: 20050727
  Serious: Yes (Other)
  Sender: FDA-Public Use
  Company Number: None

PATIENT
  Sex: Female
  Weight: 62.5964 kg

DRUGS (2)
  1. NAVELBINE [Suspect]
     Indication: BREAST CANCER
     Dosage: 41 MG IV
     Route: 042
     Dates: start: 20041015, end: 20050121
  2. PROCRIT [Concomitant]

REACTIONS (3)
  - INFUSION SITE ERYTHEMA [None]
  - LABORATORY TEST INTERFERENCE [None]
  - MEDICATION ERROR [None]
